FAERS Safety Report 4870786-0 (Version None)
Quarter: 2006Q1

REPORT INFORMATION
  Report Type: 
  Country: None (occurrence: None)
  Receive Date: 20060103
  Receipt Date: 20050907
  Transmission Date: 20060701
  Serious: Yes (Hospitalization, Disabling)
  Sender: FDA-Public Use
  Company Number: US-MERCK-0509USA00808

PATIENT
  Age: 72 Year
  Sex: Male
  Weight: 95 kg

DRUGS (11)
  1. VIOXX [Suspect]
     Indication: OSTEOARTHRITIS
     Route: 048
     Dates: start: 19990723, end: 20040319
  2. VIOXX [Suspect]
     Indication: MUSCULOSKELETAL PAIN
     Route: 048
     Dates: start: 19990723, end: 20040319
  3. DIOVAN [Concomitant]
     Indication: HYPERTENSION
     Route: 065
     Dates: start: 20021101
  4. LIPITOR [Concomitant]
     Indication: BLOOD CHOLESTEROL
     Route: 065
     Dates: start: 20021101, end: 20040801
  5. ZOCOR [Concomitant]
     Indication: BLOOD CHOLESTEROL
     Route: 065
     Dates: start: 20020301
  6. FLOMAX (MORNIFLUMATE) [Concomitant]
     Indication: BENIGN PROSTATIC HYPERPLASIA
     Route: 065
  7. ZYRTEC [Concomitant]
     Route: 065
  8. LOTREL [Concomitant]
     Route: 065
  9. PREVACID [Concomitant]
     Route: 065
  10. SPIRONOLACTONE [Concomitant]
     Indication: HYPERTENSION
     Route: 065
  11. SPIRONOLACTONE [Concomitant]
     Indication: CARDIAC DISORDER
     Route: 065

REACTIONS (9)
  - ABDOMINAL PAIN UPPER [None]
  - ACUTE MYOCARDIAL INFARCTION [None]
  - BENIGN PANCREATIC NEOPLASM [None]
  - DIABETES MELLITUS INADEQUATE CONTROL [None]
  - DYSLIPIDAEMIA [None]
  - HYPERTENSIVE HEART DISEASE [None]
  - SINUS BRADYCARDIA [None]
  - SUPRAVENTRICULAR EXTRASYSTOLES [None]
  - VENTRICULAR HYPERTROPHY [None]
